FAERS Safety Report 5970881-9 (Version None)
Quarter: 2008Q4

REPORT INFORMATION
  Report Type: 
  Country: None (occurrence: None)
  Receive Date: 20081128
  Receipt Date: 20081117
  Transmission Date: 20090506
  Serious: Yes (Other)
  Sender: FDA-Public Use
  Company Number: PHHY2008IL28914

PATIENT
  Age: 73 Year
  Sex: Male

DRUGS (1)
  1. ZOMETA [Suspect]
     Indication: PROSTATE CANCER
     Dosage: UNK
     Route: 042
     Dates: start: 20080601

REACTIONS (4)
  - JAW DISORDER [None]
  - OSTEOMYELITIS [None]
  - POST PROCEDURAL INFECTION [None]
  - TOOTH DISORDER [None]
